FAERS Safety Report 5884167-4 (Version None)
Quarter: 2008Q3

REPORT INFORMATION
  Report Type: 
  Country: None (occurrence: None)
  Receive Date: 20080915
  Receipt Date: 20080910
  Transmission Date: 20090109
  Serious: Yes (Hospitalization, Other)
  Sender: FDA-Public Use
  Company Number: FR-BRISTOL-MYERS SQUIBB COMPANY-14331532

PATIENT
  Age: 76 Year
  Sex: Female

DRUGS (3)
  1. COUMADIN [Suspect]
     Dosage: 1 = DOSAGE FORM = 1 QUARTER OF 5MG TABS
     Route: 048
     Dates: end: 20080325
  2. ZESTORETIC [Concomitant]
  3. XATRAL LP [Concomitant]

REACTIONS (2)
  - HEPATORENAL SYNDROME [None]
  - INTERNATIONAL NORMALISED RATIO INCREASED [None]
